FAERS Safety Report 17165842 (Version 5)
Quarter: 2021Q4

REPORT INFORMATION
  Report Type: Spontaneous
  Country: US (occurrence: US)
  Receive Date: 20191217
  Receipt Date: 20211129
  Transmission Date: 20220304
  Serious: Yes (Other)
  Sender: FDA-Public Use
  Company Number: US-SA-2019SA346329

PATIENT
  Age: 66 Year
  Sex: Male

DRUGS (2)
  1. ELOCTATE [Suspect]
     Active Substance: (1-743)-(1638-2332)-BLOOD-COAGULATION FACTOR VIII (SYNTHETIC HUMAN) FUSION PROTEIN WITH IMMUNOGLOBUL
     Indication: Haemorrhage
     Dosage: 1800 IU, PRN
     Route: 042
  2. ELOCTATE [Suspect]
     Active Substance: (1-743)-(1638-2332)-BLOOD-COAGULATION FACTOR VIII (SYNTHETIC HUMAN) FUSION PROTEIN WITH IMMUNOGLOBUL
     Indication: Haemorrhage
     Dosage: 1800 IU, PRN
     Route: 042

REACTIONS (4)
  - Haemorrhage [Recovered/Resolved]
  - Fall [Unknown]
  - Neck pain [Recovering/Resolving]
  - Traumatic haemorrhage [Unknown]

NARRATIVE: CASE EVENT DATE: 20191209
